FAERS Safety Report 6682744-4 (Version None)
Quarter: 2010Q2

REPORT INFORMATION
  Report Type: 
  Country: None (occurrence: None)
  Receive Date: 20100415
  Receipt Date: 20100412
  Transmission Date: 20101027
  Serious: Yes (Hospitalization)
  Sender: FDA-Public Use
  Company Number: US-ELI_LILLY_AND_COMPANY-US201004003090

PATIENT
  Age: 86 Year
  Sex: Male

DRUGS (3)
  1. HUMALOG [Suspect]
  2. HUMALOG [Suspect]
     Dosage: 30 U, UNK
     Dates: start: 20090101, end: 20090101
  3. LANTUS [Concomitant]
     Indication: DIABETES MELLITUS
     Dosage: 30 U, DAILY (1/D)
     Route: 058

REACTIONS (1)
  - WRONG DRUG ADMINISTERED [None]
